FAERS Safety Report 13078442 (Version 1)
Quarter: 2017Q1

REPORT INFORMATION
  Report Type: Spontaneous
  Country: TW (occurrence: TW)
  Receive Date: 20170102
  Receipt Date: 20170102
  Transmission Date: 20170428
  Serious: Yes (Other)
  Sender: FDA-Public Use
  Company Number: TW-UCBSA-2016049959

PATIENT
  Age: 17 Year
  Sex: Female

DRUGS (4)
  1. LEVETIRACETAM. [Suspect]
     Active Substance: LEVETIRACETAM
     Indication: STATUS EPILEPTICUS
     Dosage: UNK
     Dates: start: 201410
  2. CLONAZEPAM. [Concomitant]
     Active Substance: CLONAZEPAM
     Indication: STATUS EPILEPTICUS
     Dosage: UNK
     Dates: start: 201410
  3. LEVETIRACETAM. [Suspect]
     Active Substance: LEVETIRACETAM
     Indication: OFF LABEL USE
  4. PHENYTOIN. [Concomitant]
     Active Substance: PHENYTOIN
     Indication: STATUS EPILEPTICUS
     Dosage: UNK
     Dates: start: 201410

REACTIONS (3)
  - Off label use [Unknown]
  - Drug ineffective for unapproved indication [Unknown]
  - Coma [Recovered/Resolved]

NARRATIVE: CASE EVENT DATE: 201410
